FAERS Safety Report 17608790 (Version 3)
Quarter: 2022Q3

REPORT INFORMATION
  Report Type: Spontaneous
  Country: JP (occurrence: JP)
  Receive Date: 20200401
  Receipt Date: 20220713
  Transmission Date: 20221027
  Serious: Yes (Hospitalization, Other)
  Sender: FDA-Public Use
  Company Number: JP-GLAXOSMITHKLINE-JP2020JPN055282

PATIENT

DRUGS (6)
  1. LAMICTAL [Suspect]
     Active Substance: LAMOTRIGINE
     Indication: Epilepsy
     Dosage: 25 MG, QD, AFTER BREAKFAST
     Route: 048
     Dates: start: 20191213, end: 20191226
  2. LAMICTAL [Suspect]
     Active Substance: LAMOTRIGINE
     Dosage: 50 MG, QD, AFTER BREAKFAST
     Route: 048
     Dates: start: 20191227, end: 20200108
  3. CLOPIDOGREL BISULFATE [Concomitant]
     Active Substance: CLOPIDOGREL BISULFATE
     Dosage: 75 MG, 1D
     Route: 048
     Dates: start: 201907
  4. FAMOTIDINE [Concomitant]
     Active Substance: FAMOTIDINE
     Dosage: 10 MG, 1D
     Route: 048
     Dates: start: 201907
  5. NIFEDIPINE CR TABLETS [Concomitant]
     Dosage: 20 MG, 1D
     Route: 048
     Dates: start: 201907
  6. MINIPRESS [Concomitant]
     Active Substance: PRAZOSIN HYDROCHLORIDE
     Dosage: 1 MG, 1D
     Route: 048
     Dates: start: 201907

REACTIONS (17)
  - Stevens-Johnson syndrome [Recovering/Resolving]
  - Ocular hyperaemia [Unknown]
  - Swelling of eyelid [Unknown]
  - Hypersensitivity [Unknown]
  - Vision blurred [Unknown]
  - Oropharyngeal pain [Unknown]
  - Pyrexia [Unknown]
  - Drug eruption [Unknown]
  - Viral infection [Unknown]
  - Coating in mouth [Unknown]
  - Erythema [Unknown]
  - Swelling [Unknown]
  - Pharyngitis [Unknown]
  - Lip erosion [Unknown]
  - Oral pain [Recovered/Resolved]
  - Lip swelling [Unknown]
  - Lip pain [Recovered/Resolved]

NARRATIVE: CASE EVENT DATE: 20200107
